FAERS Safety Report 9280165 (Version 2)
Quarter: 2012Q4

REPORT INFORMATION
  Report Type: Spontaneous
  Country: US (occurrence: None)
  Receive Date: 20120924
  Receipt Date: 20121004
  Transmission Date: 20130627
  Serious: Yes (Death, Hospitalization)
  Sender: FDA-Public Use
  Company Number: DKLU1077081

PATIENT
  Age: 5 Month
  Sex: Female

DRUGS (2)
  1. SABRIL (FOR ORAL SOLUTION)(SABRIL)(VIGABATRIN)(500 MG, POWDER FOR ORAL SOLUTION) [Suspect]
     Indication: INFANTILE SPASMS
     Dosage: milligram (s), 2 in 1 D
     Route: 048
     Dates: start: 20120210
  2. SABRIL (FOR ORAL SOLUTION)(SABRIL)(VIGABATRIN)(500 MG, POWDER FOR ORAL SOLUTION) [Suspect]
     Indication: EPILEPSY
     Dosage: milligram (s), 2 in 1 D
     Route: 048
     Dates: start: 20120210

REACTIONS (1)
  - Death [None]
